FAERS Safety Report 21646935 (Version 1)
Quarter: 2022Q4

REPORT INFORMATION
  Report Type: Spontaneous
  Country: NL (occurrence: NL)
  Receive Date: 20221127
  Receipt Date: 20221127
  Transmission Date: 20230112
  Serious: Yes (Other)
  Sender: FDA-Public Use
  Company Number: None

PATIENT
  Sex: Male
  Weight: 109.5 kg

DRUGS (6)
  1. OLANZAPINE [Suspect]
     Active Substance: OLANZAPINE
     Indication: Psychotic disorder
     Dosage: 10 MILLIGRAM DAILY; BRAND NAME NOT SPECIFIED, FORM STRENGTH : 10 MG, THERAPY END DATE : ASKU
     Route: 065
     Dates: start: 20170801
  2. HYDROCHLOROTHIAZIDE [Concomitant]
     Active Substance: HYDROCHLOROTHIAZIDE
     Indication: Product used for unknown indication
     Dosage: 12.5 MICROGRAM DAILY; BRAND NAME NOT SPECIFIED, FORM STRENGTH : 12.5 MG, THERAPY START DATE AND DATE
     Route: 065
  3. NORTRIPTYLINE [Concomitant]
     Active Substance: NORTRIPTYLINE
     Indication: Product used for unknown indication
     Dosage: 100 MILLIGRAM DAILY; 1D100 MG A.N., FORM STRENGTH : 50 MG, THERAPY START DATE AND END DATE : ASKU
     Route: 065
  4. AMLODIPINE [Concomitant]
     Active Substance: AMLODIPINE BESYLATE
     Indication: Product used for unknown indication
     Dosage: 5 MILLIGRAM DAILY; BRAND NAME NOT SPECIFIED, FORM STRENGTH : 5 MG, THERAPY START DATE AND END DATE :
     Route: 065
  5. ENALAPRIL [Concomitant]
     Active Substance: ENALAPRIL
     Indication: Product used for unknown indication
     Dosage: 5 MILLIGRAM DAILY; BRAND NAME NOT SPECIFIED, FORM STRENGTH : 5 MG, THERAPY START DATE AND END DATE :
     Route: 065
  6. MOVICOLON [Concomitant]
     Active Substance: POLYETHYLENE GLYCOL 3350\POTASSIUM CHLORIDE\SODIUM BICARBONATE\SODIUM CHLORIDE
     Indication: Product used for unknown indication
     Dosage: POWDER FOR ORAL SOLUTION, SPORADICALLY, MACROGOL/SALTS PDR V DRINK (MOVIC/MOLAX/LAXT/GEN) / MOVICOLO
     Route: 065

REACTIONS (5)
  - Apnoea [Unknown]
  - Periorbital oedema [Unknown]
  - Oedema peripheral [Unknown]
  - Snoring [Unknown]
  - Localised oedema [Unknown]
